FAERS Safety Report 14398763 (Version 2)
Quarter: 2018Q2

REPORT INFORMATION
  Report Type: Spontaneous
  Country: US (occurrence: US)
  Receive Date: 20180117
  Receipt Date: 20180615
  Transmission Date: 20180711
  Serious: Yes (Other)
  Sender: FDA-Public Use
  Company Number: US-ASTRAZENECA-2018SE03976

PATIENT
  Age: 21972 Day
  Sex: Male
  Weight: 79.4 kg

DRUGS (46)
  1. NEXIUM [Suspect]
     Active Substance: ESOMEPRAZOLE MAGNESIUM
     Indication: GASTROOESOPHAGEAL REFLUX DISEASE
     Route: 048
     Dates: start: 20060613
  2. VIIBRYD [Concomitant]
     Active Substance: VILAZODONE HYDROCHLORIDE
     Indication: DEPRESSION
     Route: 065
     Dates: start: 20111207
  3. HYDRALAZINE [Concomitant]
     Active Substance: HYDRALAZINE HYDROCHLORIDE
     Indication: BLOOD PRESSURE MEASUREMENT
  4. ATORVASTATIN [Concomitant]
     Active Substance: ATORVASTATIN
     Indication: BLOOD CHOLESTEROL
  5. PROBIOTIC [Concomitant]
     Active Substance: PROBIOTICS NOS
  6. UBIQUINOL [Concomitant]
     Active Substance: UBIQUINOL
  7. VITAMIN D [Concomitant]
     Active Substance: CHOLECALCIFEROL
     Dosage: 1000[IU]/DL DAILY
     Route: 065
  8. FAMOTIDINE. [Concomitant]
     Active Substance: FAMOTIDINE
  9. NIZATIDINE. [Concomitant]
     Active Substance: NIZATIDINE
  10. BUPROPION. [Concomitant]
     Active Substance: BUPROPION
     Indication: DEPRESSION
     Route: 065
     Dates: start: 20090117
  11. NIACIN. [Concomitant]
     Active Substance: NIACIN
     Indication: BLOOD PRESSURE MEASUREMENT
     Route: 065
  12. SIMVASTATIN. [Concomitant]
     Active Substance: SIMVASTATIN
     Indication: BLOOD CHOLESTEROL
     Route: 065
     Dates: start: 20090325
  13. ZANTAC [Concomitant]
     Active Substance: RANITIDINE HYDROCHLORIDE
  14. CIMETIDINE [Concomitant]
     Active Substance: CIMETIDINE
  15. HYDROCHLOROTHIAZIDE. [Concomitant]
     Active Substance: HYDROCHLOROTHIAZIDE
     Route: 065
     Dates: start: 20091002
  16. CALCITRIOL. [Concomitant]
     Active Substance: CALCITRIOL
     Route: 065
     Dates: start: 20110415
  17. HYDRALAZINE [Concomitant]
     Active Substance: HYDRALAZINE HYDROCHLORIDE
     Route: 065
     Dates: start: 20160906
  18. PRILOSEC [Concomitant]
     Active Substance: OMEPRAZOLE MAGNESIUM
     Indication: GASTROOESOPHAGEAL REFLUX DISEASE
     Route: 048
     Dates: start: 20050520
  19. NEXIUM [Suspect]
     Active Substance: ESOMEPRAZOLE MAGNESIUM
     Indication: GASTROOESOPHAGEAL REFLUX DISEASE
     Route: 048
     Dates: start: 2003, end: 2016
  20. FISH OIL [Concomitant]
     Active Substance: FISH OIL
  21. HYDROCODONE BIT???IBUPROFEN [Concomitant]
     Route: 065
     Dates: start: 20100617
  22. HYDROCODONE^ACETAMINOPHEN [Concomitant]
     Route: 065
     Dates: start: 20100625
  23. NORVASC [Concomitant]
     Active Substance: AMLODIPINE BESYLATE
     Route: 065
     Dates: start: 20091008
  24. CHLOROPHYLL [Concomitant]
     Route: 048
     Dates: start: 20121120
  25. TAGAMET [Concomitant]
     Active Substance: CIMETIDINE
     Route: 048
     Dates: start: 20050520
  26. AMLODIPINE BESYLATE. [Concomitant]
     Active Substance: AMLODIPINE BESYLATE
     Indication: BLOOD PRESSURE MEASUREMENT
     Route: 065
     Dates: start: 20090520
  27. QUINAPRIL. [Concomitant]
     Active Substance: QUINAPRIL
     Indication: BLOOD PRESSURE MEASUREMENT
     Dosage: 20/12.5 MG DAILY
     Route: 065
     Dates: start: 20090102
  28. IRON [Concomitant]
     Active Substance: IRON
  29. GRAPE SEED [Concomitant]
     Active Substance: HERBALS\VITIS VINIFERA SEED
  30. RANITIDINE. [Concomitant]
     Active Substance: RANITIDINE
     Dates: start: 2017, end: 2018
  31. CLINDAMYCIN HYDROCHLORIDE. [Concomitant]
     Active Substance: CLINDAMYCIN HYDROCHLORIDE
     Route: 065
     Dates: start: 20100617
  32. COENZYME Q [Concomitant]
     Route: 065
  33. SERTRALINE [Concomitant]
     Active Substance: SERTRALINE HYDROCHLORIDE
     Indication: DEPRESSION
     Route: 065
     Dates: start: 20090217
  34. VITAMIN C [Concomitant]
     Active Substance: ASCORBIC ACID
  35. BASIS [Concomitant]
  36. NITRIC OXIDE. [Concomitant]
     Active Substance: NITRIC OXIDE
     Route: 065
     Dates: start: 200801
  37. LISINOPRIL. [Concomitant]
     Active Substance: LISINOPRIL
     Route: 065
     Dates: start: 20081217
  38. PHENOL. [Concomitant]
     Active Substance: PHENOL
     Route: 048
  39. ACIDOPHILUS [Concomitant]
     Active Substance: LACTOBACILLUS ACIDOPHILUS
     Route: 048
     Dates: start: 20110516
  40. CHLORELLA VULGARIS [Concomitant]
     Active Substance: CHLORELLA VULGARIS
     Route: 048
     Dates: start: 20121120
  41. NEXIUM 24HR [Concomitant]
     Active Substance: ESOMEPRAZOLE MAGNESIUM
     Indication: ULCER
  42. CITRULLINE [Concomitant]
     Active Substance: CITRULLINE
     Indication: BLOOD PRESSURE MEASUREMENT
  43. GLUCOSAMINE CHONDROITIN [Concomitant]
     Active Substance: CHONDROITIN SULFATE (BOVINE)\GLUCOSAMINE HYDROCHLORIDE
     Dosage: 1500 COMPLX ORAL CAPSULE
     Route: 048
  44. L-ARGININE [Concomitant]
     Active Substance: ARGININE
     Indication: BLOOD PRESSURE MEASUREMENT
  45. MAGNESIUM POTASSIUM ASPARTATE [Concomitant]
     Indication: MAGNESIUM DEFICIENCY
  46. ABILIFY [Concomitant]
     Active Substance: ARIPIPRAZOLE
     Route: 065
     Dates: start: 20120120

REACTIONS (1)
  - Chronic kidney disease [Unknown]

NARRATIVE: CASE EVENT DATE: 20080923
